FAERS Safety Report 24184818 (Version 2)
Quarter: 2024Q3

REPORT INFORMATION
  Report Type: Report from Study
  Country: CA (occurrence: None)
  Receive Date: 20240807
  Receipt Date: 20240809
  Transmission Date: 20241017
  Serious: Yes (Hospitalization, Other)
  Sender: ASTRAZENECA
  Company Number: 2024A176604

PATIENT
  Sex: Female

DRUGS (1)
  1. FASENRA [Suspect]
     Active Substance: BENRALIZUMAB
     Indication: Asthma
     Dosage: 30.0MG UNKNOWN
     Route: 058
     Dates: start: 20190214

REACTIONS (5)
  - Dyspnoea [Unknown]
  - Blood iron decreased [Unknown]
  - Volume blood decreased [Unknown]
  - Haemorrhage [Unknown]
  - Drug ineffective [Unknown]
